FAERS Safety Report 8167121-1 (Version None)
Quarter: 2012Q1

REPORT INFORMATION
  Report Type: 
  Country: None (occurrence: None)
  Receive Date: 20120221
  Receipt Date: 20120213
  Transmission Date: 20120608
  Serious: Yes (Hospitalization)
  Sender: FDA-Public Use
  Company Number: 2012MA002020

PATIENT
  Age: 27 Year
  Sex: Male

DRUGS (2)
  1. PROPYLTHIOURACIL [Suspect]
     Indication: HYPERTHYROIDISM
     Dosage: 150 MG;TID
  2. METOPROLOL SUCCINATE [Concomitant]

REACTIONS (22)
  - HYPERCOAGULATION [None]
  - PALPITATIONS [None]
  - INSOMNIA [None]
  - HYPOAESTHESIA [None]
  - WEIGHT DECREASED [None]
  - TEMPERATURE INTOLERANCE [None]
  - ATRIAL SEPTAL DEFECT [None]
  - EMBOLIC STROKE [None]
  - ANTINUCLEAR ANTIBODY POSITIVE [None]
  - HEART RATE INCREASED [None]
  - BLOOD PRESSURE SYSTOLIC INCREASED [None]
  - GAZE PALSY [None]
  - UPPER MOTOR NEURONE LESION [None]
  - ANTIPHOSPHOLIPID SYNDROME [None]
  - RESPIRATORY RATE INCREASED [None]
  - HEMIANOPIA HOMONYMOUS [None]
  - ACTIVATED PARTIAL THROMBOPLASTIN TIME PROLONGED [None]
  - DIPLOPIA [None]
  - HYPERREFLEXIA [None]
  - ISCHAEMIC STROKE [None]
  - HYPERTHYROIDISM [None]
  - NYSTAGMUS [None]
